FAERS Safety Report 7754535-4 (Version None)
Quarter: 2011Q3

REPORT INFORMATION
  Report Type: 
  Country: None (occurrence: None)
  Receive Date: 20110915
  Receipt Date: 20110216
  Transmission Date: 20111222
  Serious: No
  Sender: FDA-Public Use
  Company Number: US-BAYER-2011-015856

PATIENT
  Age: 62 Year
  Sex: Male
  Weight: 90.703 kg

DRUGS (1)
  1. ULTRAVIST 150 [Suspect]
     Indication: UROGRAM
     Dosage: UNK
     Dates: start: 20110215

REACTIONS (6)
  - OCULAR HYPERAEMIA [None]
  - EYE PRURITUS [None]
  - SNEEZING [None]
  - PRURITUS [None]
  - OROPHARYNGEAL DISCOMFORT [None]
  - THROAT IRRITATION [None]
